FAERS Safety Report 11885202 (Version 1)
Quarter: 2016Q1

REPORT INFORMATION
  Report Type: Spontaneous
  Country: IL (occurrence: IL)
  Receive Date: 20160104
  Receipt Date: 20160104
  Transmission Date: 20160526
  Serious: Yes (Hospitalization)
  Sender: FDA-Public Use
  Company Number: IL-GE HEALTHCARE MEDICAL DIAGNOSTICS-VISP-PR-1512S-0515

PATIENT
  Age: 70 Year
  Sex: Male

DRUGS (4)
  1. RYTHMEX [Concomitant]
     Active Substance: PROPAFENONE HYDROCHLORIDE
  2. VISIPAQUE [Suspect]
     Active Substance: IODIXANOL
     Indication: PRODUCT USED FOR UNKNOWN INDICATION
     Route: 065
     Dates: start: 20151222, end: 20151222
  3. VISIPAQUE [Suspect]
     Active Substance: IODIXANOL
     Indication: THERAPEUTIC PROCEDURE
  4. TRITACE [Concomitant]
     Active Substance: RAMIPRIL

REACTIONS (3)
  - Oxygen saturation decreased [Recovering/Resolving]
  - Dyspnoea [Recovering/Resolving]
  - Erythema [Recovering/Resolving]

NARRATIVE: CASE EVENT DATE: 20151222
